FAERS Safety Report 4525835-6 (Version None)
Quarter: 2004Q4

REPORT INFORMATION
  Report Type: 
  Country: None (occurrence: None)
  Receive Date: 20041124
  Receipt Date: 20040304
  Transmission Date: 20050328
  Serious: Yes (Other)
  Sender: FDA-Public Use
  Company Number: PHEH2004US02712

PATIENT
  Age: 67 Year
  Sex: Male

DRUGS (2)
  1. MIOCHOL-E [Suspect]
     Indication: CATARACT
     Dosage: ONCE/SINGLE, INTRAOCULAR INJ
     Route: 031
  2. BSS (MAGNESIUM CHLORIDE ANHYDROUS) [Concomitant]

REACTIONS (2)
  - CORNEAL OEDEMA [None]
  - MEDICATION ERROR [None]
